FAERS Safety Report 9795846 (Version 3)
Quarter: 2014Q2

REPORT INFORMATION
  Report Type: Spontaneous
  Country: US (occurrence: US)
  Receive Date: 20140103
  Receipt Date: 20140403
  Transmission Date: 20141212
  Serious: Yes (Other)
  Sender: FDA-Public Use
  Company Number: US-ASTELLAS-2013US013514

PATIENT
  Age: 59 Year
  Sex: Female

DRUGS (5)
  1. VESICARE [Suspect]
     Indication: HYPERTONIC BLADDER
     Dosage: 10 MG, ONCE A DAY
     Route: 048
     Dates: start: 200810, end: 201310
  2. DITROPAN [Concomitant]
     Indication: PRODUCT USED FOR UNKNOWN INDICATION
     Dosage: UNK
     Route: 065
     Dates: start: 200802
  3. DITROPAN [Concomitant]
     Dosage: UNK
     Route: 065
     Dates: start: 200911
  4. DETROL [Concomitant]
     Indication: PRODUCT USED FOR UNKNOWN INDICATION
     Dosage: UNK
     Route: 065
     Dates: start: 201006
  5. DETROL [Concomitant]
     Dosage: UNK
     Route: 065
     Dates: start: 20131020, end: 20140326

REACTIONS (2)
  - Bladder dysfunction [Unknown]
  - Nocturia [Unknown]
